FAERS Safety Report 12853270 (Version 1)
Quarter: 2016Q4

REPORT INFORMATION
  Report Type: Spontaneous
  Country: US (occurrence: US)
  Receive Date: 20161017
  Receipt Date: 20161017
  Transmission Date: 20170207
  Serious: No
  Sender: FDA-Public Use
  Company Number: US-JAZZ-2016-US-014099

PATIENT
  Sex: Female

DRUGS (44)
  1. XYREM [Suspect]
     Active Substance: SODIUM OXYBATE
     Dosage: DOSE ADJUSTMENTS
     Route: 048
     Dates: start: 200904, end: 201512
  2. COPPER [Concomitant]
     Active Substance: COPPER
  3. VITAMIN B5 [Concomitant]
     Active Substance: PANTOTHENIC ACID
  4. MEDROL [Concomitant]
     Active Substance: METHYLPREDNISOLONE
  5. T3 [Concomitant]
     Active Substance: LIOTHYRONINE SODIUM
  6. XYREM [Suspect]
     Active Substance: SODIUM OXYBATE
     Indication: INSOMNIA
     Dosage: 2.25 G, BID
     Route: 048
     Dates: start: 200405, end: 2004
  7. XYREM [Suspect]
     Active Substance: SODIUM OXYBATE
     Dosage: 3 G, BID
     Route: 048
     Dates: start: 200903, end: 200904
  8. XYREM [Suspect]
     Active Substance: SODIUM OXYBATE
     Dosage: 3.75 G, FIRST DOSE
     Route: 048
     Dates: start: 201512
  9. XYREM [Suspect]
     Active Substance: SODIUM OXYBATE
     Dosage: 4.5 G, SECOND DOSE
     Route: 048
     Dates: start: 201512
  10. LYRICA [Concomitant]
     Active Substance: PREGABALIN
  11. DLPA [Concomitant]
  12. FISH OIL [Concomitant]
     Active Substance: FISH OIL
  13. GLUCOSAMINE CHONDROITIN [Concomitant]
     Active Substance: CHONDROITIN SULFATE (BOVINE)\GLUCOSAMINE HYDROCHLORIDE
  14. MAGNESIUM OXIDE. [Concomitant]
     Active Substance: MAGNESIUM OXIDE
  15. MANGANESE GLUCONATE. [Concomitant]
     Active Substance: MANGANESE GLUCONATE
  16. VSL 3 [Concomitant]
  17. LEXAPRO [Concomitant]
     Active Substance: ESCITALOPRAM OXALATE
  18. NAC [Concomitant]
  19. SELENIUM [Concomitant]
     Active Substance: SELENIUM
  20. VITAMIN B12 [Concomitant]
     Active Substance: CYANOCOBALAMIN
  21. ALPHA LIPOIC ACID [Concomitant]
     Active Substance: .ALPHA.-LIPOIC ACID
  22. VALTREX [Concomitant]
     Active Substance: VALACYCLOVIR HYDROCHLORIDE
  23. FLUOXETINE [Concomitant]
     Active Substance: FLUOXETINE HYDROCHLORIDE
  24. WELLBUTRIN [Concomitant]
     Active Substance: BUPROPION HYDROCHLORIDE
  25. VITAMIN B2 [Concomitant]
     Active Substance: RIBOFLAVIN
  26. BIOTIN [Concomitant]
     Active Substance: BIOTIN
  27. CRESTOR [Concomitant]
     Active Substance: ROSUVASTATIN CALCIUM
  28. VITAMIN D [Concomitant]
     Active Substance: CHOLECALCIFEROL
  29. ZINC CHELATE [Concomitant]
  30. ALPRAZOLAM. [Concomitant]
     Active Substance: ALPRAZOLAM
  31. XANAX [Concomitant]
     Active Substance: ALPRAZOLAM
  32. VITAMIN C [Concomitant]
     Active Substance: ASCORBIC ACID
  33. AMLODIPINE BESYLATE. [Concomitant]
     Active Substance: AMLODIPINE BESYLATE
  34. OMEPRAZOLE. [Concomitant]
     Active Substance: OMEPRAZOLE
  35. LISINOPRIL. [Concomitant]
     Active Substance: LISINOPRIL
  36. EVOXAC [Concomitant]
     Active Substance: CEVIMELINE HYDROCHLORIDE
  37. CALCIUM + VITAMIN D [Concomitant]
     Active Substance: CALCIUM\VITAMIN D
  38. MELATONIN [Concomitant]
     Active Substance: MELATONIN
  39. NIACIN. [Concomitant]
     Active Substance: NIACIN
  40. VITAMIN E [Concomitant]
     Active Substance: .ALPHA.-TOCOPHEROL
  41. BACLOFEN. [Concomitant]
     Active Substance: BACLOFEN
  42. COENZYME Q10 [Concomitant]
     Active Substance: UBIDECARENONE
  43. VITAMIN B1 [Concomitant]
     Active Substance: THIAMINE HYDROCHLORIDE
  44. VITAMIN D3 [Concomitant]
     Active Substance: CHOLECALCIFEROL

REACTIONS (1)
  - Drug ineffective [Unknown]
